FAERS Safety Report 21909089 (Version 1)
Quarter: 2023Q1

REPORT INFORMATION
  Report Type: Spontaneous
  Country: US (occurrence: US)
  Receive Date: 20230125
  Receipt Date: 20230125
  Transmission Date: 20230417
  Serious: Yes (Other)
  Sender: FDA-Public Use
  Company Number: US-SA-SAC20230125000182

PATIENT
  Age: 38 Year
  Sex: Male

DRUGS (2)
  1. ELOCTATE [Suspect]
     Active Substance: EFMOROCTOCOG ALFA
     Dosage: 4000 IU
     Route: 042
     Dates: start: 20230117
  2. ELOCTATE [Suspect]
     Active Substance: EFMOROCTOCOG ALFA
     Dosage: 4000 IU
     Route: 042
     Dates: start: 20230117

REACTIONS (2)
  - Post procedural haemorrhage [Unknown]
  - Dental care [Unknown]

NARRATIVE: CASE EVENT DATE: 20230117
